FAERS Safety Report 6818029 (Version 1)
Quarter: 2020Q3

REPORT INFORMATION
  Report Type: Spontaneous
  Country: SE (occurrence: SE)
  Receive Date: 20081121
  Receipt Date: 20081121
  Transmission Date: 20201104
  Serious: Yes (Other)
  Sender: FDA-Public Use
  Company Number: SE-ROCHE-596446

PATIENT
  Sex: Female

DRUGS (1)
  1. IBANDRONIC ACID. [Suspect]
     Active Substance: IBANDRONIC ACID
     Route: 065

REACTIONS (1)
  - Haemolytic anaemia [Unknown]

NARRATIVE: CASE EVENT DATE: 20080101
